FAERS Safety Report 13272944 (Version 1)
Quarter: 2017Q1

REPORT INFORMATION
  Report Type: Spontaneous
  Country: NZ (occurrence: NZ)
  Receive Date: 20170227
  Receipt Date: 20170227
  Transmission Date: 20170428
  Serious: Yes (Death)
  Sender: FDA-Public Use
  Company Number: PHHY2017NZ024027

PATIENT
  Age: 10 Week
  Sex: Female
  Weight: 4 kg

DRUGS (2)
  1. DIGOXIN. [Suspect]
     Active Substance: DIGOXIN
     Indication: PNEUMONIA STAPHYLOCOCCAL
     Dosage: 80 UG, Q6H
     Route: 042
  2. DIGOXIN. [Suspect]
     Active Substance: DIGOXIN
     Dosage: 800 UG, UNK (3.2 ML OF THE ADULT FORMULATION, EQUIVALENT TO 800 ?G)
     Route: 030

REACTIONS (3)
  - Neonatal respiratory distress syndrome [Fatal]
  - Product use issue [Unknown]
  - Accidental overdose [Unknown]
